FAERS Safety Report 10651814 (Version 1)
Quarter: 2014Q4

REPORT INFORMATION
  Report Type: Spontaneous
  Country: US (occurrence: None)
  Receive Date: 20141212
  Receipt Date: 20141212
  Transmission Date: 20150529
  Serious: Yes (Other)
  Sender: FDA-Public Use
  Company Number: None

PATIENT
  Age: 55 Year
  Sex: Female

DRUGS (1)
  1. KINERET [Suspect]
     Active Substance: ANAKINRA
     Indication: RHEUMATOID ARTHRITIS
     Dosage: 100 MG   Q24HRS  SUB-Q
     Route: 058
     Dates: start: 20141112, end: 20141211

REACTIONS (4)
  - Erythema [None]
  - Injection site reaction [None]
  - Pruritus [None]
  - Urticaria [None]

NARRATIVE: CASE EVENT DATE: 20141122
